FAERS Safety Report 24059686 (Version 1)
Quarter: 2024Q3

REPORT INFORMATION
  Report Type: Spontaneous
  Country: CN (occurrence: CN)
  Receive Date: 20240708
  Receipt Date: 20240708
  Transmission Date: 20241016
  Serious: Yes (Other)
  Sender: SANOFI AVENTIS
  Company Number: CN-SA-SAC20240707000034

PATIENT
  Age: 75 Year
  Sex: Female
  Weight: 51 kg

DRUGS (6)
  1. CLOPIDOGREL BISULFATE [Suspect]
     Active Substance: CLOPIDOGREL BISULFATE
     Indication: Platelet count increased
     Dosage: 75 MG, QD
     Route: 048
     Dates: start: 20240621, end: 20240703
  2. ASPIRIN [Suspect]
     Active Substance: ASPIRIN
     Indication: Platelet count increased
     Dosage: 100 MG, QD
     Route: 048
     Dates: start: 20240621, end: 20240703
  3. ENOXAPARIN SODIUM [Suspect]
     Active Substance: ENOXAPARIN SODIUM
     Indication: Thrombosis prophylaxis
     Dosage: 0.4 ML, BID
     Route: 058
     Dates: start: 20240621, end: 20240626
  4. PANTOPRAZOLE SODIUM [Suspect]
     Active Substance: PANTOPRAZOLE SODIUM
     Indication: Gastrointestinal disorder
     Dosage: 40 MG, QD
     Route: 041
     Dates: start: 20240621, end: 20240702
  5. ATORVASTATIN CALCIUM [Suspect]
     Active Substance: ATORVASTATIN CALCIUM
     Indication: Lipids increased
     Dosage: 20 MG, QD
     Route: 048
     Dates: start: 20240621, end: 20240625
  6. SODIUM CHLORIDE [Concomitant]
     Active Substance: SODIUM CHLORIDE
     Dosage: 100 ML, QD
     Route: 041
     Dates: start: 20240621, end: 20240702

REACTIONS (1)
  - Transaminases increased [Recovering/Resolving]

NARRATIVE: CASE EVENT DATE: 20240622
